FAERS Safety Report 7738499-5 (Version None)
Quarter: 2011Q3

REPORT INFORMATION
  Report Type: 
  Country: None (occurrence: None)
  Receive Date: 20110906
  Receipt Date: 20110822
  Transmission Date: 20111222
  Serious: Yes (Other)
  Sender: FDA-Public Use
  Company Number: 2011AM005239

PATIENT
  Sex: Female

DRUGS (2)
  1. SYMLIN [Suspect]
     Indication: DIABETES MELLITUS
     Dosage: ;SC
     Route: 058
  2. LANTUS [Concomitant]

REACTIONS (1)
  - BREAST CANCER RECURRENT [None]
